FAERS Safety Report 8435665-0 (Version None)
Quarter: 2012Q2

REPORT INFORMATION
  Report Type: 
  Country: None (occurrence: None)
  Receive Date: 20120614
  Receipt Date: 20110611
  Transmission Date: 20120825
  Serious: Yes (Hospitalization)
  Sender: FDA-Public Use
  Company Number: IT-ALLERGAN-1208144US

PATIENT
  Sex: Female

DRUGS (1)
  1. VISTABEX A? [Suspect]
     Indication: SKIN WRINKLING
     Dosage: UNK DOSE AND LOT
     Route: 030

REACTIONS (3)
  - PYREXIA [None]
  - HEADACHE [None]
  - MENINGITIS VIRAL [None]
